FAERS Safety Report 9158553 (Version 1)
Quarter: 2013Q1

REPORT INFORMATION
  Report Type: Spontaneous
  Country: US (occurrence: US)
  Receive Date: 20130312
  Receipt Date: 20130312
  Transmission Date: 20140127
  Serious: Yes (Other)
  Sender: FDA-Public Use
  Company Number: US-PFIZER INC-2013078993

PATIENT
  Age: 7 Year
  Sex: Male
  Weight: 28.12 kg

DRUGS (1)
  1. BENEFIX [Suspect]
     Indication: FACTOR IX DEFICIENCY
     Dosage: 60 IU/KG, AS NEEDED

REACTIONS (2)
  - Haemorrhage [Unknown]
  - Disease complication [Unknown]
